FAERS Safety Report 15346303 (Version 4)
Quarter: 2018Q4

REPORT INFORMATION
  Report Type: Report from Study
  Country: JP (occurrence: JP)
  Receive Date: 20180904
  Receipt Date: 20181107
  Transmission Date: 20190204
  Serious: Yes (Death, Other)
  Sender: FDA-Public Use
  Company Number: JP-BRISTOL-MYERS SQUIBB COMPANY-BMS-2016-111327

PATIENT
  Age: 67 Year
  Sex: Male
  Weight: 71 kg

DRUGS (9)
  1. IPILIMUMAB [Suspect]
     Active Substance: IPILIMUMAB
     Indication: MALIGNANT MELANOMA STAGE IV
     Dosage: 3 MG/KG, Q3WK
     Route: 041
     Dates: start: 20160405, end: 20160405
  2. OXYCONTIN [Suspect]
     Active Substance: OXYCODONE HYDROCHLORIDE
     Indication: PRODUCT USED FOR UNKNOWN INDICATION
     Dosage: UNK
     Route: 065
  3. LOXOPROFEN NA [Suspect]
     Active Substance: LOXOPROFEN SODIUM
     Indication: PRODUCT USED FOR UNKNOWN INDICATION
     Dosage: UNK
     Route: 065
  4. MEKINIST [Suspect]
     Active Substance: TRAMETINIB DIMETHYL SULFOXIDE
     Indication: MALIGNANT MELANOMA STAGE IV
     Dosage: UNK
     Route: 065
     Dates: start: 20160620, end: 20160906
  5. TAFINLAR [Suspect]
     Active Substance: DABRAFENIB MESYLATE
     Indication: MALIGNANT MELANOMA STAGE IV
     Dosage: UNK
     Route: 065
     Dates: start: 20160620, end: 20160906
  6. LYRICA [Suspect]
     Active Substance: PREGABALIN
     Indication: PRODUCT USED FOR UNKNOWN INDICATION
     Dosage: UNK
     Route: 048
  7. ZELBORAF [Suspect]
     Active Substance: VEMURAFENIB
     Indication: PRODUCT USED FOR UNKNOWN INDICATION
     Dosage: 1920 MG, QD
     Route: 065
     Dates: start: 20150710, end: 20151013
  8. NIVOLUMAB [Suspect]
     Active Substance: NIVOLUMAB
     Indication: MALIGNANT MELANOMA
     Dosage: 2 MG/KG, UNK
     Route: 041
     Dates: start: 20141021, end: 2015
  9. TEPRENONE [Concomitant]
     Active Substance: TEPRENONE
     Indication: PRODUCT USED FOR UNKNOWN INDICATION
     Dosage: UNK
     Route: 065

REACTIONS (10)
  - Malaise [Unknown]
  - Inappropriate schedule of product administration [Unknown]
  - Hypothyroidism [Not Recovered/Not Resolved]
  - Nausea [Recovering/Resolving]
  - Skin hypopigmentation [Unknown]
  - Thrombophlebitis [Recovering/Resolving]
  - Gamma-glutamyltransferase increased [Recovered/Resolved]
  - Malignant neoplasm progression [Fatal]
  - Hyponatraemia [Not Recovered/Not Resolved]
  - Blood alkaline phosphatase increased [Recovered/Resolved]

NARRATIVE: CASE EVENT DATE: 20150420
